FAERS Safety Report 11086626 (Version 1)
Quarter: 2015Q2

REPORT INFORMATION
  Report Type: Spontaneous
  Country: US (occurrence: None)
  Receive Date: 20150430
  Receipt Date: 20150430
  Transmission Date: 20150821
  Serious: Yes (Disabling, Other)
  Sender: FDA-Public Use
  Company Number: 2015-11161

PATIENT
  Age: 68 Year
  Sex: Female
  Weight: 71.7 kg

DRUGS (5)
  1. FARXIGA [Concomitant]
     Active Substance: DAPAGLIFLOZIN PROPANEDIOL
  2. NOVOLOG [Concomitant]
     Active Substance: INSULIN ASPART
  3. GLUCOTROL [Concomitant]
     Active Substance: GLIPIZIDE
  4. LEVEMIR [Concomitant]
     Active Substance: INSULIN DETEMIR
  5. EYLEA [Suspect]
     Active Substance: AFLIBERCEPT
     Indication: DIABETIC RETINAL OEDEMA
     Dosage: UNK, 1ST INJECTION, INTRAOCULAR
     Route: 031
     Dates: start: 20150402

REACTIONS (3)
  - Pain [None]
  - Eye pain [None]
  - Blindness [None]

NARRATIVE: CASE EVENT DATE: 20150402
